FAERS Safety Report 7578936-2 (Version None)
Quarter: 2011Q2

REPORT INFORMATION
  Report Type: 
  Country: None (occurrence: None)
  Receive Date: 20110628
  Receipt Date: 20110614
  Transmission Date: 20111010
  Serious: Yes (Hospitalization, Other)
  Sender: FDA-Public Use
  Company Number: US-PURDUE-CAN-2011-0002069

PATIENT
  Age: 78 Year
  Sex: Male
  Weight: 75.692 kg

DRUGS (29)
  1. QUETIAPINE [Concomitant]
     Indication: DEPRESSION
  2. COSOPT [Concomitant]
     Indication: GLAUCOMA
     Dosage: UNK
     Dates: start: 20040101
  3. METHYLCELLULOSE [Concomitant]
     Indication: DRY EYE
     Dosage: UNK
     Dates: start: 20101006, end: 20101016
  4. DIMENHYDRINATE [Concomitant]
     Indication: VOMITING
     Dosage: UNK
     Dates: start: 20101008, end: 20101008
  5. PLACEBO [Suspect]
     Indication: PROSTATE CANCER
     Dosage: 37.5 MG, DAILY
     Route: 048
     Dates: start: 20100705, end: 20100927
  6. BENZYDAMINE [Concomitant]
     Indication: STOMATITIS
     Dosage: UNK
     Dates: start: 20101007
  7. DOCUSATE SODIUM [Concomitant]
     Indication: CONSTIPATION
     Dosage: UNK
     Dates: start: 20100719
  8. MILK OF MAGNESIA TAB [Concomitant]
     Dosage: 30 ML, BID PRN
  9. DILAUDID [Suspect]
     Indication: ORAL PAIN
     Dosage: 2 MG, Q4H PRN
     Route: 048
     Dates: start: 20101016, end: 20101017
  10. DILAUDID [Suspect]
     Indication: ORAL PAIN
     Dosage: 0.5 MG, Q4H PRN
     Route: 058
     Dates: start: 20101007, end: 20101007
  11. PANTOPRAZOLE [Concomitant]
     Indication: GASTROOESOPHAGEAL REFLUX DISEASE
     Dosage: UNK
     Dates: start: 20100818
  12. DILAUDID [Suspect]
     Dosage: 1 MG, Q4H PRN
     Route: 058
     Dates: start: 20101007, end: 20101007
  13. POTASSIUM CITRATE [Concomitant]
     Indication: HYPOKALAEMIA
     Dosage: UNK
     Dates: start: 20101011
  14. BIMATOPROST [Concomitant]
     Indication: GLAUCOMA
     Dosage: UNK
     Dates: start: 20040101
  15. SUNITINIB MALATE [Suspect]
     Indication: PROSTATE CANCER
     Dosage: 37.5 MG, DAILY
     Route: 048
     Dates: start: 20100705, end: 20100927
  16. LACTULOSE [Concomitant]
     Indication: CONSTIPATION
     Dosage: UNK
     Dates: start: 20101007
  17. PHOSPHATE-SANDOZ [Concomitant]
     Indication: HYPOPHOSPHATAEMIA
     Dosage: 500 MG, UNK
     Route: 048
     Dates: start: 20101007, end: 20101017
  18. DOMPERIDONE [Concomitant]
     Indication: GASTROOESOPHAGEAL REFLUX DISEASE
     Dosage: UNK
     Dates: start: 20101007, end: 20101016
  19. NYSTATIN [Concomitant]
     Indication: STOMATITIS
     Dosage: UNK
     Dates: start: 20101006, end: 20101016
  20. DALTEPARIN SODIUM [Concomitant]
     Indication: PULMONARY EMBOLISM
     Dosage: UNK
     Dates: start: 20101011
  21. SLOW-K [Concomitant]
     Indication: HYPOKALAEMIA
     Dosage: UNK
     Dates: start: 20101007
  22. LIDOCAINE [Concomitant]
     Indication: STOMATITIS
     Dosage: UNK
     Dates: start: 20101008, end: 20101016
  23. MILK OF MAGNESIA TAB [Concomitant]
     Indication: CONSTIPATION
     Dosage: 15 ML, BID PRN
  24. DILAUDID [Suspect]
     Indication: GROIN PAIN
     Dosage: 1 MG, Q4H PRN
     Route: 048
     Dates: start: 20101005, end: 20101005
  25. QUETIAPINE [Concomitant]
     Indication: MOOD ALTERED
     Dosage: UNK
     Dates: start: 20101011
  26. MAALOX                             /00082501/ [Concomitant]
     Indication: GASTROOESOPHAGEAL REFLUX DISEASE
     Dosage: UNK
     Dates: start: 20101011, end: 20101016
  27. DILAUDID [Suspect]
     Indication: BONE PAIN
     Dosage: 1 MG, Q4H PRN
     Route: 048
     Dates: start: 20100720, end: 20101006
  28. PREDNISONE [Suspect]
     Indication: PROSTATE CANCER
     Dosage: 5 MG, DAILY
     Route: 048
     Dates: start: 20100705, end: 20100927
  29. BISACODYL [Concomitant]
     Indication: CONSTIPATION
     Dosage: UNK
     Dates: start: 20101011, end: 20101016

REACTIONS (3)
  - CONSTIPATION [None]
  - INTESTINAL OBSTRUCTION [None]
  - VOMITING [None]
